FAERS Safety Report 18108362 (Version 1)
Quarter: 2020Q3

REPORT INFORMATION
  Report Type: Spontaneous
  Country: US (occurrence: US)
  Receive Date: 20200803
  Receipt Date: 20200803
  Transmission Date: 20201103
  Serious: Yes (Hospitalization)
  Sender: FDA-Public Use
  Company Number: None

PATIENT
  Age: 76 Year
  Sex: Female

DRUGS (7)
  1. DEXAMETHASONE. [Concomitant]
     Active Substance: DEXAMETHASONE
  2. PEPCID [Concomitant]
     Active Substance: FAMOTIDINE
  3. COTELLIC [Suspect]
     Active Substance: COBIMETINIB
     Indication: MALIGNANT MELANOMA
     Route: 048
     Dates: start: 20200721, end: 20200801
  4. LEVOTHYROXIN [Concomitant]
     Active Substance: LEVOTHYROXINE
  5. ZELBORAF [Suspect]
     Active Substance: VEMURAFENIB
     Indication: MALIGNANT MELANOMA
     Route: 048
     Dates: start: 20200721, end: 20200801
  6. TOPROL XL [Concomitant]
     Active Substance: METOPROLOL SUCCINATE
  7. DOCUSATE [Concomitant]
     Active Substance: DOCUSATE

REACTIONS (4)
  - Thrombosis [None]
  - Diarrhoea [None]
  - Rash [None]
  - Dizziness [None]

NARRATIVE: CASE EVENT DATE: 20200801
